FAERS Safety Report 6763570-4 (Version None)
Quarter: 2010Q2

REPORT INFORMATION
  Report Type: 
  Country: None (occurrence: None)
  Receive Date: 20100610
  Receipt Date: 20100603
  Transmission Date: 20101027
  Serious: Yes (Life-Threatening, Hospitalization)
  Sender: FDA-Public Use
  Company Number: PHHY2010US36390

PATIENT
  Sex: Female

DRUGS (1)
  1. EXJADE [Suspect]
     Indication: IRON DEFICIENCY ANAEMIA
     Dosage: 2500 MG, QD
     Route: 048
     Dates: start: 20100325, end: 20100603

REACTIONS (2)
  - CEREBROVASCULAR ACCIDENT [None]
  - RENAL FAILURE [None]
